FAERS Safety Report 4621201-3 (Version None)
Quarter: 2005Q1

REPORT INFORMATION
  Report Type: 
  Country: None (occurrence: None)
  Receive Date: 20050328
  Receipt Date: 20050311
  Transmission Date: 20050727
  Serious: Yes (Hospitalization)
  Sender: FDA-Public Use
  Company Number: 2005-0008153

PATIENT
  Age: 37 Year
  Sex: Male
  Weight: 66 kg

DRUGS (9)
  1. TENOFOVIR DISOPROXIL FUMARATE (TENOFOVIR DISOPROXIL FUMARATE) [Suspect]
     Indication: HIV TEST POSITIVE
     Dosage: 300 MG, 1 IN 1 D ORAL
     Route: 048
     Dates: start: 20030805, end: 20050114
  2. TENOFOVIR DISOPROXIL FUMARATE (TENOFOVIR DISOPROXIL FUMARATE) [Suspect]
     Indication: HIV TEST POSITIVE
     Dosage: 300 MG, 1 IN 1 D ORAL
     Route: 048
     Dates: start: 20050125
  3. CAPRAVIRINE (ANTIVIRALS FOR SYSTEMIC USE) [Suspect]
     Indication: HIV INFECTION
     Dosage: 700 MG, 2 IN 1 D, ORAL
     Route: 048
     Dates: start: 20040709, end: 20050114
  4. CAPRAVIRINE (ANTIVIRALS FOR SYSTEMIC USE) [Suspect]
     Indication: HIV INFECTION
     Dosage: 700 MG, 2 IN 1 D, ORAL
     Route: 048
     Dates: start: 20050125
  5. KALETRA [Suspect]
     Indication: HIV TEST POSITIVE
     Dosage: 666 MG, 2 IN 1 D, ORAL
     Route: 048
     Dates: start: 20030805, end: 20050114
  6. KALETRA [Suspect]
     Indication: HIV TEST POSITIVE
     Dosage: 666 MG, 2 IN 1 D, ORAL
     Route: 048
     Dates: start: 20050125
  7. LAMIVUDINE [Suspect]
     Indication: HIV TEST POSITIVE
     Dosage: 150 MG, 2 IN 1 D, ORAL
     Route: 048
     Dates: start: 19990610, end: 20050114
  8. LAMIVUDINE [Suspect]
     Indication: HIV TEST POSITIVE
     Dosage: 150 MG, 2 IN 1 D, ORAL
     Route: 048
     Dates: start: 20050125
  9. LOPERAMIDE [Concomitant]

REACTIONS (4)
  - BACK PAIN [None]
  - HEPATITIS A [None]
  - HEPATITIS VIRAL [None]
  - LETHARGY [None]
